FAERS Safety Report 9276151 (Version 2)
Quarter: 2013Q2

REPORT INFORMATION
  Report Type: Spontaneous
  Country: JP (occurrence: JP)
  Receive Date: 20130507
  Receipt Date: 20130523
  Transmission Date: 20140414
  Serious: Yes (Hospitalization)
  Sender: FDA-Public Use
  Company Number: JP-ALLERGAN-1306312US

PATIENT
  Age: 68 Year
  Sex: Male

DRUGS (1)
  1. ALESION TABLET [Suspect]
     Indication: SEASONAL ALLERGY
     Dosage: 10 MG, UNK
     Route: 048
     Dates: start: 201304, end: 201304

REACTIONS (1)
  - Pneumonia [Recovered/Resolved]
